FAERS Safety Report 10058368 (Version 2)
Quarter: 2014Q2

REPORT INFORMATION
  Report Type: Spontaneous
  Country: GB (occurrence: GB)
  Receive Date: 20140404
  Receipt Date: 20140623
  Transmission Date: 20141212
  Serious: Yes (Hospitalization)
  Sender: FDA-Public Use
  Company Number: GB-ACCORD-022861

PATIENT
  Age: 74 Year
  Sex: Male

DRUGS (9)
  1. METHOTREXATE [Suspect]
     Indication: PRODUCT USED FOR UNKNOWN INDICATION
     Dosage: 20 MG/0.4 ML
     Route: 058
  2. PIPERACILLIN/TAZOBACTAM [Interacting]
     Indication: PRODUCT USED FOR UNKNOWN INDICATION
     Dosage: 4G/0.5G
     Route: 055
     Dates: start: 20140311, end: 20140314
  3. MIRTAZAPINE [Concomitant]
     Indication: DEPRESSION
     Dosage: ONGOING
     Route: 048
  4. ALENDRONATE SODIUM/ALENDRONIC ACID [Concomitant]
     Indication: PROPHYLAXIS
     Dosage: ONGOING
     Route: 048
  5. FOLIC ACID [Concomitant]
     Dosage: ONGOING
     Route: 050
  6. PREDNISOLONE [Concomitant]
     Dosage: ONGOING
     Route: 050
  7. CLEXANE [Concomitant]
     Indication: THROMBOSIS PROPHYLAXIS
     Route: 058
     Dates: start: 20140311
  8. LANSOPRAZOLE [Concomitant]
     Indication: PROPHYLAXIS
     Dosage: ONGOING
     Route: 048
  9. HYDROXYCHLOROQUINE [Concomitant]
     Dosage: ONGOING
     Route: 048

REACTIONS (2)
  - Drug interaction [Recovering/Resolving]
  - Burning mouth syndrome [Recovering/Resolving]
